FAERS Safety Report 8901706 (Version 1)
Quarter: 2012Q4

REPORT INFORMATION
  Report Type: Spontaneous
  Country: SZ (occurrence: None)
  Receive Date: 20121101
  Receipt Date: 20121101
  Transmission Date: 20130627
  Serious: Yes (Disabling, Other)
  Sender: FDA-Public Use
  Company Number: 20120674

PATIENT
  Age: 33 Year
  Sex: Female

DRUGS (1)
  1. VENOFER [Suspect]
     Indication: ANEMIA, POSTPARTUM
     Dosage: in 10 ml in NaCl
     Dates: start: 20120404, end: 20120404

REACTIONS (8)
  - Extravasation [None]
  - Skin discolouration [None]
  - Contusion [None]
  - Oedema peripheral [None]
  - Skin warm [None]
  - Joint range of motion decreased [None]
  - Myalgia [None]
  - Paraesthesia [None]
